FAERS Safety Report 18208783 (Version 1)
Quarter: 2020Q3

REPORT INFORMATION
  Report Type: Report from Study
  Country: CA (occurrence: CA)
  Receive Date: 20200828
  Receipt Date: 20200828
  Transmission Date: 20201103
  Serious: Yes (Death)
  Sender: FDA-Public Use
  Company Number: CA-OTSUKA-2019_025062

PATIENT
  Age: 59 Year
  Sex: Female

DRUGS (4)
  1. ABILIFY MAINTENA [Suspect]
     Active Substance: ARIPIPRAZOLE
     Indication: PRODUCT USED FOR UNKNOWN INDICATION
     Dosage: 400 MG Q30 DAYS
     Route: 030
     Dates: end: 20200728
  2. ABILIFY MAINTENA [Suspect]
     Active Substance: ARIPIPRAZOLE
     Dosage: 300 MG, (Q 4 WEEKS)
     Route: 065
     Dates: start: 20190529
  3. ABILIFY MAINTENA [Suspect]
     Active Substance: ARIPIPRAZOLE
     Dosage: 400 MG (Q 4 WEEKS)
     Route: 030
  4. ABILIFY MAINTENA [Suspect]
     Active Substance: ARIPIPRAZOLE
     Dosage: 400 MG Q28 DAYS
     Route: 030
     Dates: start: 20191205

REACTIONS (2)
  - Death [Fatal]
  - Underdose [Unknown]

NARRATIVE: CASE EVENT DATE: 20190529
